FAERS Safety Report 6256393-6 (Version None)
Quarter: 2009Q3

REPORT INFORMATION
  Report Type: 
  Country: None (occurrence: None)
  Receive Date: 20090706
  Receipt Date: 20090626
  Transmission Date: 20100115
  Serious: Yes (Hospitalization)
  Sender: FDA-Public Use
  Company Number: JP-AMGEN-US351273

PATIENT
  Sex: Female

DRUGS (3)
  1. ENBREL [Suspect]
     Indication: RHEUMATOID ARTHRITIS
     Route: 058
     Dates: end: 20090407
  2. ENBREL [Suspect]
     Dosage: PREVIOUSLY ON LYOPHILIZED 25 MG WEEKLY
     Dates: start: 20071001
  3. ORCL [Concomitant]
     Indication: RHEUMATOID ARTHRITIS
     Route: 048
     Dates: start: 20070711

REACTIONS (1)
  - PULMONARY TUBERCULOSIS [None]
